FAERS Safety Report 7325672-3 (Version None)
Quarter: 2011Q1

REPORT INFORMATION
  Report Type: 
  Country: None (occurrence: None)
  Receive Date: 20110302
  Receipt Date: 20110224
  Transmission Date: 20110831
  Serious: Yes (Hospitalization, Other)
  Sender: FDA-Public Use
  Company Number: US-PFIZER INC-2010146097

PATIENT
  Sex: Male

DRUGS (9)
  1. COLCHICINE [Concomitant]
     Indication: GOUT
     Dosage: UNK
     Dates: start: 20060101, end: 20090101
  2. LORAZEPAM [Concomitant]
     Indication: BIPOLAR DISORDER
     Dosage: UNK
     Dates: start: 20060101, end: 20080101
  3. LUNESTA [Concomitant]
     Indication: INSOMNIA
     Dosage: UNK
     Dates: start: 20060101, end: 20090101
  4. PREDNISONE [Concomitant]
     Indication: INFLAMMATION
     Dosage: UNK
     Dates: start: 20060101, end: 20090101
  5. MIRTAZAPINE [Concomitant]
     Indication: DEPRESSION
     Dosage: UNK
     Dates: start: 20060101, end: 20080101
  6. NOVOLIN 70/30 [Concomitant]
     Indication: DIABETES MELLITUS
     Dosage: UNK
     Dates: start: 20060101, end: 20090101
  7. CHANTIX [Suspect]
     Indication: SMOKING CESSATION THERAPY
     Dosage: STARTER PACK AND CONTINUING MONTH PACKS
     Route: 048
     Dates: start: 20071129, end: 20080205
  8. MICARDIS [Concomitant]
     Indication: HYPERTENSION
     Dosage: UNK
     Dates: start: 20060101, end: 20080101
  9. NOVOLOG [Concomitant]
     Indication: DIABETES MELLITUS
     Dosage: UNK
     Dates: start: 20060101

REACTIONS (9)
  - HALLUCINATION, AUDITORY [None]
  - MENTAL DISORDER [None]
  - ANXIETY [None]
  - SUICIDE ATTEMPT [None]
  - HALLUCINATION, VISUAL [None]
  - PARANOIA [None]
  - BIPOLAR DISORDER [None]
  - ABNORMAL BEHAVIOUR [None]
  - NIGHTMARE [None]
